FAERS Safety Report 14907392 (Version 3)
Quarter: 2018Q3

REPORT INFORMATION
  Report Type: Spontaneous
  Country: US (occurrence: US)
  Receive Date: 20180517
  Receipt Date: 20180808
  Transmission Date: 20181010
  Serious: No
  Sender: FDA-Public Use
  Company Number: US-ASTRAZENECA-2018SE54433

PATIENT
  Age: 49 Year
  Sex: Female

DRUGS (1)
  1. TUDORZA PRESSAIR [Suspect]
     Active Substance: ACLIDINIUM BROMIDE
     Indication: ASTHMA
     Dosage: 400UG/INHAL TWO TIMES A DAY
     Route: 055

REACTIONS (3)
  - Visual acuity reduced [Unknown]
  - Drug dose omission [Unknown]
  - Device malfunction [Unknown]
